FAERS Safety Report 9309183 (Version 2)
Quarter: 2013Q2

REPORT INFORMATION
  Report Type: Spontaneous
  Country: US (occurrence: US)
  Receive Date: 20130525
  Receipt Date: 20130525
  Transmission Date: 20140414
  Serious: No
  Sender: FDA-Public Use
  Company Number: US-BRISTOL-MYERS SQUIBB COMPANY-18577551

PATIENT
  Sex: Female
  Weight: 123.36 kg

DRUGS (10)
  1. BYDUREON 2MG VIAL + SYRINGE [Suspect]
     Indication: TYPE 2 DIABETES MELLITUS
     Route: 058
     Dates: start: 201209
  2. BYETTA PEN DISPOSABLE [Suspect]
     Indication: TYPE 2 DIABETES MELLITUS
     Route: 058
     Dates: end: 201209
  3. BYETTA PEN DISPOSABLE [Suspect]
     Indication: TYPE 2 DIABETES MELLITUS
     Route: 058
  4. BYETTA PEN DISPOSABLE [Suspect]
     Indication: TYPE 2 DIABETES MELLITUS
     Route: 058
  5. EXENATIDE 10MCG PEN, DISPOSABLE DEVICE [Suspect]
  6. CRESTOR [Concomitant]
     Route: 048
  7. DIOVAN [Concomitant]
     Route: 048
  8. LEVOZIN [Concomitant]
     Indication: HYPOTHYROIDISM
     Route: 048
  9. LEVOZIN [Concomitant]
     Indication: HYPOTHYROIDISM
     Route: 048
  10. GLYBURIDE [Concomitant]
     Indication: BLOOD GLUCOSE INCREASED
     Dates: start: 201212

REACTIONS (5)
  - Hyperthyroidism [Recovered/Resolved]
  - Hypothyroidism [Unknown]
  - Blood glucose increased [Recovered/Resolved]
  - Glycosylated haemoglobin increased [Unknown]
  - Weight decreased [Recovered/Resolved]
